FAERS Safety Report 22287428 (Version 4)
Quarter: 2024Q2

REPORT INFORMATION
  Report Type: Report from Study
  Country: KR (occurrence: KR)
  Receive Date: 20230505
  Receipt Date: 20240404
  Transmission Date: 20240716
  Serious: Yes (Other)
  Sender: FDA-Public Use
  Company Number: KR-TEVA-2023-KR-2884025

PATIENT
  Age: 24 Year
  Sex: Female

DRUGS (2)
  1. AJOVY [Suspect]
     Active Substance: FREMANEZUMAB-VFRM
     Indication: Product used for unknown indication
     Route: 065
     Dates: start: 20230327, end: 20230703
  2. FROVATRIPTAN SUCCINATE [Concomitant]
     Active Substance: FROVATRIPTAN SUCCINATE
     Indication: Migraine
     Dosage: DOSAGE TEXT: THERAPY ONGOING
     Route: 048
     Dates: start: 20230323

REACTIONS (1)
  - Hemiparaesthesia [Recovered/Resolved]

NARRATIVE: CASE EVENT DATE: 20230328
